FAERS Safety Report 7321833-8 (Version None)
Quarter: 2011Q1

REPORT INFORMATION
  Report Type: 
  Country: None (occurrence: None)
  Receive Date: 20110228
  Receipt Date: 20110215
  Transmission Date: 20110831
  Serious: Yes (Hospitalization)
  Sender: FDA-Public Use
  Company Number: PHHY2011HR12167

PATIENT
  Sex: Male

DRUGS (5)
  1. AMLOPIN [Suspect]
     Indication: HYPERTENSION
     Dosage: 5 MG, QD
     Route: 048
     Dates: start: 20000101
  2. TEOLIN [Concomitant]
     Dosage: 600 MG, BID
     Route: 048
     Dates: start: 19950101
  3. LIPEX [Concomitant]
     Indication: HYPERLIPIDAEMIA
     Dosage: 20 MG, QD
     Route: 048
     Dates: start: 19980101
  4. KETONAL [Suspect]
     Dosage: UNK MG, UNK
     Route: 048
     Dates: start: 20100101
  5. ANDOL [Suspect]
     Indication: PERIPHERAL VASCULAR DISORDER
     Dosage: UNK
     Route: 048
     Dates: start: 20100201, end: 20100901

REACTIONS (3)
  - HAEMATEMESIS [None]
  - NAUSEA [None]
  - ABDOMINAL PAIN UPPER [None]
